FAERS Safety Report 6517348-7 (Version None)
Quarter: 2009Q4

REPORT INFORMATION
  Report Type: 
  Country: None (occurrence: None)
  Receive Date: 20091218
  Receipt Date: 20091209
  Transmission Date: 20100525
  Serious: Yes (Other)
  Sender: FDA-Public Use
  Company Number: 2009AC000502

PATIENT
  Sex: Male

DRUGS (1)
  1. DIGOXIN [Suspect]
     Dosage: ;PO
     Route: 048
     Dates: start: 20050101

REACTIONS (6)
  - DIZZINESS [None]
  - ECONOMIC PROBLEM [None]
  - FALL [None]
  - MULTIPLE INJURIES [None]
  - SYNCOPE [None]
  - THROMBOSIS [None]
